FAERS Safety Report 6380149-7 (Version None)
Quarter: 2009Q3

REPORT INFORMATION
  Report Type: 
  Country: None (occurrence: None)
  Receive Date: 20090929
  Receipt Date: 20090921
  Transmission Date: 20100115
  Serious: Yes (Other)
  Sender: FDA-Public Use
  Company Number: US-JNJFOC-20090906678

PATIENT
  Sex: Female
  Weight: 56.25 kg

DRUGS (7)
  1. DURAGESIC-100 [Suspect]
     Route: 062
     Dates: start: 20090601, end: 20090801
  2. DURAGESIC-100 [Suspect]
     Indication: PAIN
     Route: 062
     Dates: start: 20090601, end: 20090801
  3. SEROQUEL [Concomitant]
     Indication: SLEEP DISORDER
     Route: 048
  4. NEURONTIN [Concomitant]
     Indication: PAIN
     Route: 048
  5. CELEXA [Concomitant]
     Indication: PAIN
     Route: 048
  6. KLONOPIN [Concomitant]
     Indication: DEPRESSION
  7. PAIN MEDICATION UNSPECIFIED [Concomitant]
     Indication: PAIN
     Route: 048

REACTIONS (2)
  - MENORRHAGIA [None]
  - THERAPY CESSATION [None]
